FAERS Safety Report 6336401-4 (Version None)
Quarter: 2009Q3

REPORT INFORMATION
  Report Type: 
  Country: None (occurrence: None)
  Receive Date: 20090826
  Receipt Date: 20090818
  Transmission Date: 20100115
  Serious: Yes (Other)
  Sender: FDA-Public Use
  Company Number: ADR13402009

PATIENT

DRUGS (1)
  1. CITALOPRAM HYDROBROMIDE [Suspect]
     Indication: DEPRESSION
     Dosage: 10MG ORAL
     Route: 048

REACTIONS (3)
  - CLEFT LIP [None]
  - CLEFT PALATE [None]
  - MATERNAL DRUGS AFFECTING FOETUS [None]
